FAERS Safety Report 5256411-8 (Version None)
Quarter: 2007Q1

REPORT INFORMATION
  Report Type: 
  Country: None (occurrence: None)
  Receive Date: 20070306
  Receipt Date: 20070228
  Transmission Date: 20070707
  Serious: Yes (Other)
  Sender: FDA-Public Use
  Company Number: FR-JNJFOC-20070300149

PATIENT
  Age: 20 Year
  Sex: Female

DRUGS (2)
  1. REMICADE [Suspect]
     Dosage: 2ND INFUSION
     Route: 042
  2. REMICADE [Suspect]
     Indication: COLITIS ULCERATIVE
     Route: 042

REACTIONS (4)
  - CHEST DISCOMFORT [None]
  - DYSPNOEA [None]
  - EJECTION FRACTION DECREASED [None]
  - MALAISE [None]
